FAERS Safety Report 9350388 (Version 1)
Quarter: 2013Q2

REPORT INFORMATION
  Report Type: Report from Study
  Country: FR (occurrence: FR)
  Receive Date: 20130617
  Receipt Date: 20130617
  Transmission Date: 20140414
  Serious: Yes (Death, Other)
  Sender: FDA-Public Use
  Company Number: FR-ROCHE-GNE265193

PATIENT
  Age: 59 Year
  Sex: Male

DRUGS (5)
  1. ALTEPLASE [Suspect]
     Indication: BASILAR ARTERY THROMBOSIS
     Dosage: 20 MG, UNK
     Route: 013
  2. ALTEPLASE [Suspect]
     Dosage: 20 MG, UNK
     Route: 013
  3. ALTEPLASE [Suspect]
     Dosage: 10 MG, UNK
     Route: 013
  4. HEPARIN [Suspect]
     Indication: BASILAR ARTERY THROMBOSIS
     Dosage: 50 IU/KG, SINGLE
     Route: 040
  5. HEPARIN [Suspect]
     Dosage: 200 IU/KG, UNK
     Route: 042

REACTIONS (3)
  - Death [Fatal]
  - Haemorrhagic transformation stroke [Unknown]
  - Drug ineffective [Unknown]
